FAERS Safety Report 25200704 (Version 3)
Quarter: 2025Q3

REPORT INFORMATION
  Report Type: Spontaneous
  Country: US (occurrence: US)
  Receive Date: 20250415
  Receipt Date: 20250707
  Transmission Date: 20251021
  Serious: No
  Sender: BAYER HEALTHCARE LLC
  Company Number: US-BAYER-2025A048982

PATIENT
  Age: 6 Year
  Sex: Male

DRUGS (2)
  1. ASTEPRO [Suspect]
     Active Substance: AZELASTINE HYDROCHLORIDE
     Route: 048
  2. ASTEPRO ALLERGY [Suspect]
     Active Substance: AZELASTINE HYDROCHLORIDE

REACTIONS (5)
  - Accidental exposure to product by child [Not Recovered/Not Resolved]
  - Pain [Not Recovered/Not Resolved]
  - Product expiration date issue [None]
  - Product lot number issue [None]
  - Product delivery mechanism issue [None]
